FAERS Safety Report 20859117 (Version 1)
Quarter: 2022Q2

REPORT INFORMATION
  Report Type: Spontaneous
  Country: US (occurrence: US)
  Receive Date: 20220523
  Receipt Date: 20220523
  Transmission Date: 20220721
  Serious: No
  Sender: FDA-Public Use
  Company Number: US-drreddys-LIT/USA/22/0150057

PATIENT
  Age: 17 Year
  Sex: Female

DRUGS (8)
  1. TACROLIMUS [Suspect]
     Active Substance: TACROLIMUS
     Indication: Prophylaxis against graft versus host disease
  2. METHOTREXATE [Suspect]
     Active Substance: METHOTREXATE
     Indication: Prophylaxis against graft versus host disease
  3. BELATACEPT [Suspect]
     Active Substance: BELATACEPT
     Indication: Prophylaxis against graft versus host disease
  4. BELATACEPT [Suspect]
     Active Substance: BELATACEPT
     Dosage: EVERY OTHER WEEK FOR FIVE DOSES
  5. BELATACEPT [Suspect]
     Active Substance: BELATACEPT
     Dosage: BELATACEPT EVERY 3-4 WEEKS FOR THREE DOSES, FOR A TOTAL OF TWELVE DOSES
  6. FLUDARABINE [Concomitant]
     Active Substance: FLUDARABINE PHOSPHATE
     Indication: Product used for unknown indication
  7. CYCLOPHOSPHAMIDE [Concomitant]
     Active Substance: CYCLOPHOSPHAMIDE
     Indication: Product used for unknown indication
  8. ALEMTUZUMAB [Concomitant]
     Active Substance: ALEMTUZUMAB
     Indication: Product used for unknown indication

REACTIONS (2)
  - Venoocclusive disease [Unknown]
  - Therapy partial responder [Unknown]
